FAERS Safety Report 20422929 (Version 1)
Quarter: 2022Q1

REPORT INFORMATION
  Report Type: Spontaneous
  Country: CN (occurrence: CN)
  Receive Date: 20220203
  Receipt Date: 20220203
  Transmission Date: 20220423
  Serious: Yes (Other)
  Sender: FDA-Public Use
  Company Number: CN-PFIZER INC-202200149723

PATIENT
  Age: 3 Year
  Sex: Male
  Weight: 17 kg

DRUGS (3)
  1. CYTARABINE [Suspect]
     Active Substance: CYTARABINE
     Indication: Acute lymphocytic leukaemia
     Dosage: 52 MG, 1X/DAY
     Route: 042
     Dates: start: 20211227, end: 20220102
  2. CYCLOPHOSPHAMIDE [Suspect]
     Active Substance: CYCLOPHOSPHAMIDE
     Indication: Acute lymphocytic leukaemia
     Dosage: 0.7 G, 1X/DAY
     Route: 041
     Dates: start: 20211222, end: 20211222
  3. MERCAPTOPURINE [Suspect]
     Active Substance: MERCAPTOPURINE
     Indication: Acute lymphocytic leukaemia
     Dosage: 34.75 MG, 1X/DAY
     Route: 048
     Dates: start: 20211222, end: 20220102

REACTIONS (2)
  - Full blood count decreased [Recovering/Resolving]
  - Anaemia [Recovering/Resolving]

NARRATIVE: CASE EVENT DATE: 20220102
